FAERS Safety Report 6362649-9 (Version None)
Quarter: 2009Q3

REPORT INFORMATION
  Report Type: 
  Country: None (occurrence: None)
  Receive Date: 20090919
  Receipt Date: 20090604
  Transmission Date: 20100115
  Serious: No
  Sender: FDA-Public Use
  Company Number: US-ABBOTT-09P-163-0578357-00

PATIENT
  Sex: Female
  Weight: 106.69 kg

DRUGS (3)
  1. HUMIRA [Suspect]
     Indication: PSORIASIS
     Dates: start: 20090401
  2. LINSPRILL [Concomitant]
     Indication: HYPERTENSION
     Dates: start: 20090301
  3. GLUCOPHAGE [Concomitant]
     Indication: PROPHYLAXIS

REACTIONS (1)
  - DRUG DOSE OMISSION [None]
